FAERS Safety Report 8425070-5 (Version None)
Quarter: 2012Q2

REPORT INFORMATION
  Report Type: 
  Country: None (occurrence: None)
  Receive Date: 20120605
  Receipt Date: 20120605
  Transmission Date: 20120825
  Serious: Yes (Life-Threatening, Hospitalization)
  Sender: FDA-Public Use
  Company Number: None

PATIENT
  Age: 54 Year
  Sex: Female
  Weight: 68.4932 kg

DRUGS (2)
  1. BETAMETHASONE SODIUM PHOSPHATE [Suspect]
     Indication: SPINAL OSTEOARTHRITIS
     Dosage: 3 CC 3 LEVEL EPIDURAL
     Route: 008
     Dates: start: 20120405
  2. BETAMETHASONE SODIUM PHOSPHATE [Suspect]
     Indication: LUMBAR RADICULOPATHY
     Dosage: 3 CC 3 LEVEL EPIDURAL
     Route: 008
     Dates: start: 20120405

REACTIONS (13)
  - CHILLS [None]
  - CONFUSIONAL STATE [None]
  - BLADDER PAIN [None]
  - MENTAL IMPAIRMENT [None]
  - ABDOMINAL DISTENSION [None]
  - ABDOMINAL PAIN [None]
  - URINE OUTPUT DECREASED [None]
  - FAECAL VOLUME DECREASED [None]
  - DYSURIA [None]
  - FUNCTIONAL GASTROINTESTINAL DISORDER [None]
  - NAUSEA [None]
  - HEADACHE [None]
  - INSOMNIA [None]
